FAERS Safety Report 21217170 (Version 1)
Quarter: 2022Q3

REPORT INFORMATION
  Report Type: Spontaneous
  Country: CN (occurrence: None)
  Receive Date: 20220816
  Receipt Date: 20220816
  Transmission Date: 20221027
  Serious: Yes (Hospitalization)
  Sender: FDA-Public Use
  Company Number: CN-Merck Healthcare KGaA-9342744

PATIENT
  Age: 30 Year
  Sex: Female
  Weight: 64 kg

DRUGS (12)
  1. GONAL-F [Suspect]
     Active Substance: FOLLITROPIN
     Indication: Polycystic ovaries
     Route: 058
     Dates: start: 20220616, end: 20220618
  2. GONAL-F [Suspect]
     Active Substance: FOLLITROPIN
     Indication: Infertility
  3. LUVERIS [Suspect]
     Active Substance: LUTROPIN ALFA
     Indication: Polycystic ovaries
     Route: 058
     Dates: start: 20220622, end: 20220624
  4. LUVERIS [Suspect]
     Active Substance: LUTROPIN ALFA
     Indication: Infertility
  5. OVIDREL [Suspect]
     Active Substance: CHORIOGONADOTROPIN ALFA
     Indication: Polycystic ovaries
     Route: 058
     Dates: start: 20220622, end: 20220624
  6. OVIDREL [Suspect]
     Active Substance: CHORIOGONADOTROPIN ALFA
     Indication: Infertility
     Route: 058
     Dates: start: 20220624
  7. MENOTROPINS [Suspect]
     Active Substance: MENOTROPINS
     Indication: Polycystic ovaries
     Route: 030
     Dates: start: 20220619, end: 20220621
  8. MENOTROPINS [Suspect]
     Active Substance: MENOTROPINS
     Indication: Infertility
     Route: 030
     Dates: start: 20220622, end: 20220624
  9. UROFOLLITROPIN [Suspect]
     Active Substance: UROFOLLITROPIN
     Indication: Polycystic ovaries
     Route: 030
     Dates: start: 20220619, end: 20220621
  10. UROFOLLITROPIN [Suspect]
     Active Substance: UROFOLLITROPIN
     Indication: Infertility
     Route: 030
     Dates: start: 20220622, end: 20220623
  11. FOLLITROPIN BETA [Suspect]
     Active Substance: FOLLITROPIN BETA
     Indication: Polycystic ovaries
     Route: 058
     Dates: start: 20220612, end: 20220615
  12. FOLLITROPIN BETA [Suspect]
     Active Substance: FOLLITROPIN BETA
     Indication: Infertility

REACTIONS (2)
  - Chest discomfort [Recovering/Resolving]
  - Abdominal distension [Recovering/Resolving]

NARRATIVE: CASE EVENT DATE: 20220701
